FAERS Safety Report 21544783 (Version 1)
Quarter: 2022Q4

REPORT INFORMATION
  Report Type: Spontaneous
  Country: US (occurrence: None)
  Receive Date: 20221101
  Receipt Date: 20221101
  Transmission Date: 20230113
  Serious: Yes (Hospitalization)
  Sender: FDA-Public Use
  Company Number: None

PATIENT
  Sex: Female

DRUGS (5)
  1. TACROLIMUS [Suspect]
     Active Substance: TACROLIMUS
     Indication: Liver transplant
     Route: 048
     Dates: start: 20210119
  2. ALPRAZOLAM [Concomitant]
     Active Substance: ALPRAZOLAM
  3. FLUOXETINE CAP [Concomitant]
  4. LEVOTHYROXIN TAB [Concomitant]
  5. URSODIOL CAP [Concomitant]

REACTIONS (1)
  - COVID-19 [None]
